FAERS Safety Report 4346239-5 (Version None)
Quarter: 2004Q2

REPORT INFORMATION
  Report Type: 
  Country: None (occurrence: None)
  Receive Date: 20040416
  Receipt Date: 20040409
  Transmission Date: 20050107
  Serious: Yes (Life-Threatening, Hospitalization, Other)
  Sender: FDA-Public Use
  Company Number: 2004-114882-NL

PATIENT
  Age: 80 Year
  Weight: 60.9 kg

DRUGS (8)
  1. TICE BCG [Suspect]
     Indication: BLADDER CANCER
     Dosage: CFU INTREVESICAL, 1/3 DOSE
     Route: 043
     Dates: start: 20020716, end: 20020828
  2. TICE BCG [Suspect]
     Indication: BLADDER CANCER
     Dosage: CFU INTRAVESICAL, 1/3 DOSE
     Route: 043
     Dates: start: 20040311
  3. INTRON A [Suspect]
     Indication: BLADDER CANCER
     Dosage: 50 IU WEEKLY INTRAVESICAL
     Route: 043
     Dates: start: 20020717, end: 20020828
  4. INTRON A [Suspect]
     Indication: BLADDER CANCER
     Dosage: 50 IU WEEKLY, INTRAVESICAL
     Route: 043
     Dates: start: 20040311
  5. LIPITOR [Concomitant]
  6. LANOXIN [Concomitant]
  7. ADVAIR DISKUS 100/50 [Concomitant]
  8. COUMADIN [Concomitant]

REACTIONS (10)
  - AORTIC ANEURYSM [None]
  - ATRIOVENTRICULAR BLOCK COMPLETE [None]
  - BENIGN PROSTATIC HYPERPLASIA [None]
  - BREATH SOUNDS DECREASED [None]
  - CEREBRAL ATROPHY [None]
  - DRUG LEVEL INCREASED [None]
  - ELECTROCARDIOGRAM ST SEGMENT DEPRESSION [None]
  - ELECTROCARDIOGRAM ST SEGMENT ELEVATION [None]
  - SYNCOPE VASOVAGAL [None]
  - VENTRICULAR TACHYCARDIA [None]
